FAERS Safety Report 18979377 (Version 4)
Quarter: 2022Q1

REPORT INFORMATION
  Report Type: Spontaneous
  Country: ES (occurrence: ES)
  Receive Date: 20210308
  Receipt Date: 20220204
  Transmission Date: 20220423
  Serious: Yes (Hospitalization)
  Sender: FDA-Public Use
  Company Number: ES-EMA-DD-20190513-FAIZAN_M-130953

PATIENT
  Age: 51 Year
  Sex: Male

DRUGS (17)
  1. MONTELUKAST [Suspect]
     Active Substance: MONTELUKAST SODIUM
     Indication: Asthma
     Dosage: UNK
     Route: 065
  2. MONTELUKAST [Suspect]
     Active Substance: MONTELUKAST SODIUM
     Dosage: 10 MILLIGRAM, ONCE A DAY, (10 MG, Q24H )
     Route: 065
     Dates: start: 201403
  3. FLUTICASONE PROPIONATE\FORMOTEROL FUMARATE [Suspect]
     Active Substance: FLUTICASONE PROPIONATE\FORMOTEROL FUMARATE
     Indication: Asthma
     Dosage: 2 DF, BID TWO PUFFS (CONTAINING FORMOTEROL/FLUTICASONE PROPIONATE 320 MIGROG/9 MICROG) TWICE DAILY
     Route: 055
  4. FLUTICASONE PROPIONATE\FORMOTEROL FUMARATE [Suspect]
     Active Substance: FLUTICASONE PROPIONATE\FORMOTEROL FUMARATE
     Dosage: UNK
     Route: 065
  5. FLUTICASONE PROPIONATE AND SALMETEROL [Suspect]
     Active Substance: FLUTICASONE PROPIONATE\SALMETEROL XINAFOATE
     Indication: Asthma
     Dosage: UNK
     Route: 065
  6. FLUTICASONE PROPIONATE AND SALMETEROL [Suspect]
     Active Substance: FLUTICASONE PROPIONATE\SALMETEROL XINAFOATE
     Dosage: 2 DF, BID TWO PUFFS (CONTAINING SALMETEROL/FLUTICASONE PROPIONATE 22/250) TWICE DAILY
     Route: 055
     Dates: start: 201403
  7. FLUTICASONE PROPIONATE [Suspect]
     Active Substance: FLUTICASONE PROPIONATE
     Indication: Asthma
     Dosage: UNK, TWO TIMES A DAY (TWO PUFFS (CONTAINING SALMETEROL/FLUTICASONE PROPIONATE 22/250))
     Route: 055
     Dates: start: 201403
  8. LEBRIKIZUMAB [Suspect]
     Active Substance: LEBRIKIZUMAB
     Indication: Asthma
     Dosage: UNK
     Route: 065
     Dates: start: 201503, end: 201608
  9. OMALIZUMAB [Suspect]
     Active Substance: OMALIZUMAB
     Indication: Asthma
     Dosage: 300 MILLIGRAM 1 MONTH
     Route: 065
  10. PREDNISONE [Suspect]
     Active Substance: PREDNISONE
     Indication: Asthma
     Dosage: UNK 5-10 MG DAILY
     Route: 048
  11. PREDNISONE [Suspect]
     Active Substance: PREDNISONE
     Dosage: 5 MILLIGRAM, ONCE A DAY
     Route: 048
     Dates: start: 201403
  12. PREDNISONE [Suspect]
     Active Substance: PREDNISONE
     Dosage: 30 MILLIGRAM, ONCE A DAY(10-30 MG EVERY 24 HOURS)
     Route: 048
     Dates: start: 201711
  13. PREDNISONE [Suspect]
     Active Substance: PREDNISONE
     Dosage: 10 MILLIGRAM, ONCE A DAY(5-10 MG EVERY 24 HOURS)
     Route: 048
     Dates: start: 201503
  14. PREDNISONE [Suspect]
     Active Substance: PREDNISONE
     Dosage: 30 MILLIGRAM, ONCE A DAY( 5-30 MG EVERY 24 HOURS)
     Route: 048
     Dates: start: 201608
  15. TIOTROPIUM [Suspect]
     Active Substance: TIOTROPIUM
     Indication: Asthma
     Dosage: UNK
     Route: 065
  16. TIOTROPIUM [Suspect]
     Active Substance: TIOTROPIUM
     Dosage: 18 MICROGRAM, ONCE A DAY
     Route: 065
     Dates: start: 201403
  17. METRONIDAZOLE [Concomitant]
     Active Substance: METRONIDAZOLE
     Indication: Blastocystis infection
     Dosage: UNK
     Route: 065

REACTIONS (2)
  - Treatment failure [Unknown]
  - Asthma [Unknown]
